FAERS Safety Report 17191239 (Version 6)
Quarter: 2022Q3

REPORT INFORMATION
  Report Type: Spontaneous
  Country: ES (occurrence: ES)
  Receive Date: 20191223
  Receipt Date: 20220921
  Transmission Date: 20221026
  Serious: Yes (Hospitalization, Other)
  Sender: FDA-Public Use
  Company Number: ES-AUROBINDO-AUR-APL-2019-076137

PATIENT
  Age: 66 Year
  Sex: Female

DRUGS (2)
  1. ERTAPENEM SODIUM [Suspect]
     Active Substance: ERTAPENEM SODIUM
     Indication: Escherichia infection
     Dosage: 1 GRAM, QD
     Route: 042
  2. ERTAPENEM SODIUM [Suspect]
     Active Substance: ERTAPENEM SODIUM
     Indication: Urinary tract discomfort

REACTIONS (2)
  - Cutaneous vasculitis [Recovered/Resolved]
  - Product use in unapproved indication [Unknown]
